FAERS Safety Report 13504102 (Version 1)
Quarter: 2017Q2

REPORT INFORMATION
  Report Type: Spontaneous
  Country: US (occurrence: US)
  Receive Date: 20170502
  Receipt Date: 20170502
  Transmission Date: 20170830
  Serious: No
  Sender: FDA-Public Use
  Company Number: US-009507513-1704USA014834

PATIENT
  Age: 35 Year
  Sex: Female
  Weight: 90.7 kg

DRUGS (1)
  1. NEXPLANON [Suspect]
     Active Substance: ETONOGESTREL
     Indication: CONTRACEPTION
     Dosage: 1 IMPLANT, UNK
     Route: 059
     Dates: start: 20170414, end: 20170424

REACTIONS (6)
  - Implant site pruritus [Recovering/Resolving]
  - Implant site inflammation [Unknown]
  - Implant site hypersensitivity [Unknown]
  - Implant site rash [Recovered/Resolved]
  - Implant site erythema [Unknown]
  - Implant site swelling [Unknown]

NARRATIVE: CASE EVENT DATE: 201704
